FAERS Safety Report 19835220 (Version 2)
Quarter: 2022Q1

REPORT INFORMATION
  Report Type: Spontaneous
  Country: CA (occurrence: CA)
  Receive Date: 20210915
  Receipt Date: 20220114
  Transmission Date: 20220424
  Serious: Yes (Other)
  Sender: FDA-Public Use
  Company Number: CA-PFIZER INC-202101145931

PATIENT
  Age: 22 Year
  Sex: Male

DRUGS (1)
  1. XELJANZ [Suspect]
     Active Substance: TOFACITINIB CITRATE
     Indication: Colitis ulcerative
     Dosage: 10 MG 2X/DAY
     Route: 048
     Dates: start: 20210610

REACTIONS (6)
  - Haematochezia [Unknown]
  - Therapeutic product effect incomplete [Unknown]
  - Constipation [Not Recovered/Not Resolved]
  - Headache [Not Recovered/Not Resolved]
  - Micturition urgency [Not Recovered/Not Resolved]
  - Urinary tract disorder [Not Recovered/Not Resolved]

NARRATIVE: CASE EVENT DATE: 20210101
